FAERS Safety Report 11149497 (Version 1)
Quarter: 2015Q2

REPORT INFORMATION
  Report Type: Report from Study
  Country: US (occurrence: US)
  Receive Date: 20150529
  Receipt Date: 20150529
  Transmission Date: 20150821
  Serious: Yes (Other)
  Sender: FDA-Public Use
  Company Number: US-BIOMARINAP-US-2015-106467

PATIENT
  Sex: Male

DRUGS (1)
  1. ALDURAZYME [Suspect]
     Active Substance: LARONIDASE
     Indication: MUCOPOLYSACCHARIDOSIS I
     Dosage: UNK, QW
     Route: 041
     Dates: start: 200306

REACTIONS (5)
  - Disease progression [Recovering/Resolving]
  - Intervertebral disc protrusion [Recovering/Resolving]
  - Arthropathy [Recovering/Resolving]
  - Mobility decreased [Recovering/Resolving]
  - Back disorder [Recovering/Resolving]
